FAERS Safety Report 19210803 (Version 1)
Quarter: 2021Q2

REPORT INFORMATION
  Report Type: Spontaneous
  Country: US (occurrence: US)
  Receive Date: 20210504
  Receipt Date: 20210504
  Transmission Date: 20210717
  Serious: Yes (Hospitalization)
  Sender: FDA-Public Use
  Company Number: US-ABBVIE-21K-163-3886302-00

PATIENT
  Age: 58 Year
  Sex: Female
  Weight: 59.02 kg

DRUGS (7)
  1. AMLODIPINE [Concomitant]
     Active Substance: AMLODIPINE BESYLATE
     Indication: HYPERTENSION
  2. BABY ASPIRIN [Concomitant]
     Active Substance: ASPIRIN
     Indication: CARDIAC DISORDER
  3. CREON [Suspect]
     Active Substance: PANCRELIPASE AMYLASE\PANCRELIPASE LIPASE\PANCRELIPASE PROTEASE
     Indication: PANCREATIC FAILURE
     Dosage: ONE CAPSULE WITH EACH MEAL, THREE TIMES A DAY
     Route: 048
     Dates: start: 2019
  4. LORAZEPAM. [Concomitant]
     Active Substance: LORAZEPAM
     Indication: ANXIOLYTIC THERAPY
  5. COVID?19 VACCINE NOS. [Concomitant]
     Active Substance: COVID-19 VACCINE NOS
     Dosage: PFIZER (SECOND DOSE)
     Route: 030
     Dates: start: 202104, end: 202104
  6. COVID?19 VACCINE NOS. [Concomitant]
     Active Substance: COVID-19 VACCINE NOS
     Indication: COVID-19
     Dosage: PFIZER(1ST DOSE)
     Route: 030
     Dates: start: 20210408, end: 20210408
  7. PRAVASTATIN. [Concomitant]
     Active Substance: PRAVASTATIN
     Indication: BLOOD CHOLESTEROL INCREASED

REACTIONS (14)
  - Head injury [Unknown]
  - Constipation [Recovering/Resolving]
  - Eye swelling [Recovered/Resolved]
  - Fear of disease [Unknown]
  - Eye injury [Recovered/Resolved]
  - Abdominal pain upper [Not Recovered/Not Resolved]
  - Gout [Recovered/Resolved]
  - Rash [Recovered/Resolved]
  - Bowel movement irregularity [Not Recovered/Not Resolved]
  - Traumatic haemorrhage [Unknown]
  - Tremor [Unknown]
  - Blood pressure increased [Unknown]
  - Fall [Unknown]
  - Weight decreased [Recovering/Resolving]

NARRATIVE: CASE EVENT DATE: 2019
